FAERS Safety Report 24849583 (Version 6)
Quarter: 2025Q2

REPORT INFORMATION
  Report Type: Spontaneous
  Country: SK (occurrence: SK)
  Receive Date: 20250116
  Receipt Date: 20250611
  Transmission Date: 20250717
  Serious: Yes (Hospitalization, Other)
  Sender: MYLAN
  Company Number: SK-MEDAC-2024-AER-05757

PATIENT
  Age: 33 Year
  Sex: Female

DRUGS (69)
  1. DOXORUBICIN [Suspect]
     Active Substance: DOXORUBICIN
     Indication: Hodgkin^s disease
  2. DOXORUBICIN [Suspect]
     Active Substance: DOXORUBICIN
     Indication: Hodgkin^s disease nodular sclerosis stage IV
     Route: 065
  3. DOXORUBICIN [Suspect]
     Active Substance: DOXORUBICIN
     Route: 065
  4. DOXORUBICIN [Suspect]
     Active Substance: DOXORUBICIN
  5. BLEOMYCIN [Suspect]
     Active Substance: BLEOMYCIN SULFATE
     Indication: Hodgkin^s disease
  6. BLEOMYCIN [Suspect]
     Active Substance: BLEOMYCIN SULFATE
     Indication: Hodgkin^s disease nodular sclerosis stage IV
     Route: 065
  7. BLEOMYCIN [Suspect]
     Active Substance: BLEOMYCIN SULFATE
     Route: 065
  8. BLEOMYCIN [Suspect]
     Active Substance: BLEOMYCIN SULFATE
  9. ETOPOSIDE [Suspect]
     Active Substance: ETOPOSIDE
     Indication: Hodgkin^s disease
  10. ETOPOSIDE [Suspect]
     Active Substance: ETOPOSIDE
     Indication: Hodgkin^s disease nodular sclerosis stage IV
     Route: 065
  11. ETOPOSIDE [Suspect]
     Active Substance: ETOPOSIDE
     Route: 065
  12. ETOPOSIDE [Suspect]
     Active Substance: ETOPOSIDE
  13. CYCLOPHOSPHAMIDE [Suspect]
     Active Substance: CYCLOPHOSPHAMIDE
     Indication: Hodgkin^s disease
  14. CYCLOPHOSPHAMIDE [Suspect]
     Active Substance: CYCLOPHOSPHAMIDE
     Indication: Hodgkin^s disease nodular sclerosis stage IV
     Route: 065
  15. CYCLOPHOSPHAMIDE [Suspect]
     Active Substance: CYCLOPHOSPHAMIDE
     Route: 065
  16. CYCLOPHOSPHAMIDE [Suspect]
     Active Substance: CYCLOPHOSPHAMIDE
  17. PROCARBAZINE [Suspect]
     Active Substance: PROCARBAZINE
     Indication: Hodgkin^s disease
  18. PROCARBAZINE [Suspect]
     Active Substance: PROCARBAZINE
     Indication: Hodgkin^s disease nodular sclerosis stage IV
     Route: 065
  19. PROCARBAZINE [Suspect]
     Active Substance: PROCARBAZINE
     Route: 065
  20. PROCARBAZINE [Suspect]
     Active Substance: PROCARBAZINE
  21. PREDNISOLONE [Suspect]
     Active Substance: PREDNISOLONE
     Indication: Hodgkin^s disease
  22. PREDNISOLONE [Suspect]
     Active Substance: PREDNISOLONE
     Route: 065
  23. PREDNISOLONE [Suspect]
     Active Substance: PREDNISOLONE
     Route: 065
  24. PREDNISOLONE [Suspect]
     Active Substance: PREDNISOLONE
  25. PREDNISONE [Suspect]
     Active Substance: PREDNISONE
     Indication: Hodgkin^s disease
  26. PREDNISONE [Suspect]
     Active Substance: PREDNISONE
     Indication: Myasthenia gravis
     Route: 065
  27. PREDNISONE [Suspect]
     Active Substance: PREDNISONE
     Indication: Hodgkin^s disease nodular sclerosis stage IV
     Route: 065
  28. PREDNISONE [Suspect]
     Active Substance: PREDNISONE
  29. ACYCLOVIR [Concomitant]
     Active Substance: ACYCLOVIR
     Indication: Infection prophylaxis
  30. ACYCLOVIR [Concomitant]
     Active Substance: ACYCLOVIR
     Indication: Supportive care
     Route: 065
  31. ACYCLOVIR [Concomitant]
     Active Substance: ACYCLOVIR
     Indication: Prophylaxis
     Route: 065
  32. ACYCLOVIR [Concomitant]
     Active Substance: ACYCLOVIR
  33. DAPSONE [Concomitant]
     Active Substance: DAPSONE
     Indication: Infection prophylaxis
  34. DAPSONE [Concomitant]
     Active Substance: DAPSONE
     Indication: Antifungal prophylaxis
     Route: 065
  35. DAPSONE [Concomitant]
     Active Substance: DAPSONE
     Route: 065
  36. DAPSONE [Concomitant]
     Active Substance: DAPSONE
  37. GRANULOCYTE COLONY-STIMULATING FACTOR NOS [Concomitant]
     Active Substance: GRANULOCYTE COLONY-STIMULATING FACTOR NOS
     Indication: Prophylaxis
  38. GRANULOCYTE COLONY-STIMULATING FACTOR NOS [Concomitant]
     Active Substance: GRANULOCYTE COLONY-STIMULATING FACTOR NOS
     Route: 065
  39. GRANULOCYTE COLONY-STIMULATING FACTOR NOS [Concomitant]
     Active Substance: GRANULOCYTE COLONY-STIMULATING FACTOR NOS
     Route: 065
  40. GRANULOCYTE COLONY-STIMULATING FACTOR NOS [Concomitant]
     Active Substance: GRANULOCYTE COLONY-STIMULATING FACTOR NOS
  41. PYRIDOSTIGMINE [Concomitant]
     Active Substance: PYRIDOSTIGMINE
     Indication: Myasthenia gravis
  42. PYRIDOSTIGMINE [Concomitant]
     Active Substance: PYRIDOSTIGMINE
     Route: 065
  43. PYRIDOSTIGMINE [Concomitant]
     Active Substance: PYRIDOSTIGMINE
     Route: 065
  44. PYRIDOSTIGMINE [Concomitant]
     Active Substance: PYRIDOSTIGMINE
  45. FLUCONAZOLE [Concomitant]
     Active Substance: FLUCONAZOLE
     Indication: Antifungal treatment
  46. FLUCONAZOLE [Concomitant]
     Active Substance: FLUCONAZOLE
     Indication: Supportive care
     Route: 065
  47. FLUCONAZOLE [Concomitant]
     Active Substance: FLUCONAZOLE
     Indication: Anti-infective therapy
     Route: 065
  48. FLUCONAZOLE [Concomitant]
     Active Substance: FLUCONAZOLE
     Indication: Infection prophylaxis
  49. FLUCONAZOLE [Concomitant]
     Active Substance: FLUCONAZOLE
     Indication: Prophylaxis
  50. CEFOPERAZONE\SULBACTAM [Concomitant]
     Active Substance: CEFOPERAZONE\SULBACTAM
     Indication: Antibiotic therapy
  51. CEFOPERAZONE\SULBACTAM [Concomitant]
     Active Substance: CEFOPERAZONE\SULBACTAM
     Route: 065
  52. CEFOPERAZONE\SULBACTAM [Concomitant]
     Active Substance: CEFOPERAZONE\SULBACTAM
     Route: 065
  53. CEFOPERAZONE\SULBACTAM [Concomitant]
     Active Substance: CEFOPERAZONE\SULBACTAM
  54. VANCOMYCIN [Concomitant]
     Active Substance: VANCOMYCIN
     Indication: Antibiotic therapy
  55. VANCOMYCIN [Concomitant]
     Active Substance: VANCOMYCIN
     Route: 065
  56. VANCOMYCIN [Concomitant]
     Active Substance: VANCOMYCIN
     Route: 065
  57. VANCOMYCIN [Concomitant]
     Active Substance: VANCOMYCIN
  58. CEFTRIAXONE [Concomitant]
     Active Substance: CEFTRIAXONE
     Indication: Anti-infective therapy
  59. CEFTRIAXONE [Concomitant]
     Active Substance: CEFTRIAXONE
     Route: 065
  60. CEFTRIAXONE [Concomitant]
     Active Substance: CEFTRIAXONE
     Route: 065
  61. CEFTRIAXONE [Concomitant]
     Active Substance: CEFTRIAXONE
  62. PREDNISONE [Concomitant]
     Active Substance: PREDNISONE
     Indication: Myasthenia gravis
  63. PREDNISONE [Concomitant]
     Active Substance: PREDNISONE
     Route: 065
  64. PREDNISONE [Concomitant]
     Active Substance: PREDNISONE
     Route: 065
  65. PREDNISONE [Concomitant]
     Active Substance: PREDNISONE
  66. Immunoglobulin [Concomitant]
     Indication: Myasthenia gravis
  67. Immunoglobulin [Concomitant]
     Route: 042
  68. Immunoglobulin [Concomitant]
     Route: 042
  69. Immunoglobulin [Concomitant]

REACTIONS (18)
  - Condition aggravated [Unknown]
  - Myasthenia gravis [Unknown]
  - Eyelid ptosis [Recovering/Resolving]
  - Dyspnoea [Recovered/Resolved]
  - Febrile neutropenia [Unknown]
  - Bulbar palsy [Recovering/Resolving]
  - Facial paresis [Recovering/Resolving]
  - Anaemia [Recovering/Resolving]
  - Muscular weakness [Recovered/Resolved]
  - Dysphonia [Recovered/Resolved]
  - Dysarthria [Recovered/Resolved]
  - Dysphagia [Recovered/Resolved]
  - Trendelenburg^s symptom [Recovered/Resolved]
  - Oxygen saturation decreased [Recovered/Resolved]
  - Grip strength decreased [Recovered/Resolved]
  - Eyelid disorder [Recovered/Resolved]
  - Infection [Unknown]
  - Off label use [Unknown]
